FAERS Safety Report 14889743 (Version 3)
Quarter: 2019Q2

REPORT INFORMATION
  Report Type: Spontaneous
  Country: US (occurrence: US)
  Receive Date: 20180514
  Receipt Date: 20190410
  Transmission Date: 20190711
  Serious: Yes (Other)
  Sender: FDA-Public Use
  Company Number: US-ASTRAZENECA-2018SE61371

PATIENT
  Sex: Female

DRUGS (32)
  1. NEXIUM [Suspect]
     Active Substance: ESOMEPRAZOLE MAGNESIUM
     Route: 048
     Dates: start: 20081201, end: 20110913
  2. DILTIAZEM. [Concomitant]
     Active Substance: DILTIAZEM
     Route: 048
     Dates: start: 20060828
  3. METHYLPREDNISOLONE. [Concomitant]
     Active Substance: METHYLPREDNISOLONE
     Route: 048
     Dates: start: 20110929
  4. OFLOXACIN. [Concomitant]
     Active Substance: OFLOXACIN
     Dates: start: 20110929
  5. NAPROXEN. [Concomitant]
     Active Substance: NAPROXEN
     Dates: start: 20110929
  6. NEXIUM [Suspect]
     Active Substance: ESOMEPRAZOLE MAGNESIUM
     Route: 048
     Dates: start: 2008, end: 2014
  7. SULFAMETHOXAZOLE [Concomitant]
     Active Substance: SULFAMETHOXAZOLE
     Route: 048
     Dates: start: 20060828
  8. PRILOSEC [Suspect]
     Active Substance: OMEPRAZOLE MAGNESIUM
     Dosage: GENERIC
     Route: 065
  9. AVALIDE [Concomitant]
     Active Substance: HYDROCHLOROTHIAZIDE\IRBESARTAN
     Route: 048
     Dates: start: 20070201
  10. METOPROLOL. [Concomitant]
     Active Substance: METOPROLOL
     Route: 048
     Dates: start: 20070524
  11. CLINDAMYCIN. [Concomitant]
     Active Substance: CLINDAMYCIN
     Route: 048
     Dates: start: 20060828
  12. IBUPROFEN. [Concomitant]
     Active Substance: IBUPROFEN
     Route: 048
     Dates: start: 20110929
  13. NEXIUM [Suspect]
     Active Substance: ESOMEPRAZOLE MAGNESIUM
     Route: 048
     Dates: start: 20110329
  14. LORATADINE. [Concomitant]
     Active Substance: LORATADINE
     Route: 048
     Dates: start: 20070201
  15. BUTALBITAL [Concomitant]
     Active Substance: BUTALBITAL
     Route: 048
     Dates: start: 20070524
  16. NEXIUM [Suspect]
     Active Substance: ESOMEPRAZOLE MAGNESIUM
     Route: 048
     Dates: start: 20090720
  17. PRILOSEC [Suspect]
     Active Substance: OMEPRAZOLE MAGNESIUM
     Route: 048
     Dates: start: 2008, end: 2014
  18. CLONIDINE. [Concomitant]
     Active Substance: CLONIDINE
  19. LABETALOL [Concomitant]
     Active Substance: LABETALOL\LABETALOL HYDROCHLORIDE
  20. AMOXICILLIN. [Concomitant]
     Active Substance: AMOXICILLIN
     Route: 048
     Dates: start: 20150202
  21. ACETAMINOPHEN. [Concomitant]
     Active Substance: ACETAMINOPHEN
     Route: 048
     Dates: start: 20070524
  22. CYCLOBENZAPRINE. [Concomitant]
     Active Substance: CYCLOBENZAPRINE
     Route: 048
     Dates: start: 20060828
  23. AMLODIPINE [Concomitant]
     Active Substance: AMLODIPINE BESYLATE
  24. FEXOFENADINE [Concomitant]
     Active Substance: FEXOFENADINE\FEXOFENADINE HYDROCHLORIDE
     Route: 048
     Dates: start: 20070524
  25. KETOROLAC [Concomitant]
     Active Substance: KETOROLAC\KETOROLAC TROMETHAMINE
     Route: 048
     Dates: start: 20110929
  26. PRILOSEC [Suspect]
     Active Substance: OMEPRAZOLE MAGNESIUM
     Route: 048
     Dates: start: 20081201, end: 20110913
  27. AZITHROMYCIN ANHYDROUS. [Concomitant]
     Active Substance: AZITHROMYCIN ANHYDROUS
     Dates: start: 20110929
  28. HYDROCHLOROTHIAZIDE. [Concomitant]
     Active Substance: HYDROCHLOROTHIAZIDE
     Route: 065
     Dates: start: 20131029
  29. DOXYCYCLINE. [Concomitant]
     Active Substance: DOXYCYCLINE
     Route: 048
     Dates: start: 20070524
  30. LISINOPRIL. [Concomitant]
     Active Substance: LISINOPRIL
     Route: 048
     Dates: start: 20060828
  31. ONDANSETRON [Concomitant]
     Active Substance: ONDANSETRON
     Route: 048
     Dates: start: 20060828
  32. LYRICA [Concomitant]
     Active Substance: PREGABALIN
     Route: 048
     Dates: start: 20060828

REACTIONS (2)
  - Chronic kidney disease [Unknown]
  - Renal failure [Not Recovered/Not Resolved]
